FAERS Safety Report 13185808 (Version 2)
Quarter: 2017Q2

REPORT INFORMATION
  Report Type: Spontaneous
  Country: US (occurrence: US)
  Receive Date: 20170203
  Receipt Date: 20170606
  Transmission Date: 20170830
  Serious: Yes (Hospitalization, Other)
  Sender: FDA-Public Use
  Company Number: US-ELI_LILLY_AND_COMPANY-US201702000806

PATIENT
  Age: 51 Year
  Sex: Male
  Weight: 102 kg

DRUGS (3)
  1. NITROGLYCERIN. [Concomitant]
     Active Substance: NITROGLYCERIN
     Indication: CHEST PAIN
     Dosage: UNK
     Dates: start: 2015
  2. ZOLOFT [Concomitant]
     Active Substance: SERTRALINE HYDROCHLORIDE
     Indication: DEPRESSION
     Dosage: UNK
     Route: 065
     Dates: start: 2013
  3. AXIRON [Suspect]
     Active Substance: TESTOSTERONE
     Indication: ANDROGEN REPLACEMENT THERAPY
     Dosage: 60 MG, DAILY
     Route: 062
     Dates: start: 201412, end: 201502

REACTIONS (3)
  - Myocardial infarction [Not Recovered/Not Resolved]
  - Depression [Not Recovered/Not Resolved]
  - Coronary artery disease [Not Recovered/Not Resolved]

NARRATIVE: CASE EVENT DATE: 201502
